FAERS Safety Report 5220883-5 (Version None)
Quarter: 2007Q1

REPORT INFORMATION
  Report Type: 
  Country: None (occurrence: None)
  Receive Date: 20070126
  Receipt Date: 20070118
  Transmission Date: 20070707
  Serious: Yes (Life-Threatening, Hospitalization)
  Sender: FDA-Public Use
  Company Number: FR-GLAXOSMITHKLINE-B0446213A

PATIENT
  Age: 69 Year
  Sex: Female
  Weight: 90 kg

DRUGS (5)
  1. ARIXTRA [Suspect]
     Indication: THROMBOSIS PROPHYLAXIS
     Dosage: 2.5MG PER DAY
     Route: 058
     Dates: start: 20061007, end: 20061013
  2. PREVISCAN [Suspect]
     Indication: THROMBOSIS PROPHYLAXIS
     Dosage: .5UNIT PER DAY
     Route: 048
     Dates: start: 20061012
  3. HYDREA [Concomitant]
     Indication: POLYCYTHAEMIA
     Dosage: 1UNIT PER DAY
     Route: 048
  4. MEDIATOR [Concomitant]
     Indication: DIABETES MELLITUS NON-INSULIN-DEPENDENT
     Dosage: 150MG THREE TIMES PER DAY
     Route: 048
  5. CIPROFLOXACIN [Concomitant]
     Indication: ESCHERICHIA URINARY TRACT INFECTION
     Dosage: 1000MG TWICE PER DAY
     Route: 048

REACTIONS (6)
  - ANAEMIA [None]
  - DRUG INTERACTION [None]
  - DYSPNOEA [None]
  - EMPHYSEMA [None]
  - HAEMOPTYSIS [None]
  - OXYGEN SATURATION DECREASED [None]
